FAERS Safety Report 6436434-3 (Version None)
Quarter: 2009Q4

REPORT INFORMATION
  Report Type: 
  Country: None (occurrence: None)
  Receive Date: 20091111
  Receipt Date: 20091109
  Transmission Date: 20100525
  Serious: Yes (Other)
  Sender: FDA-Public Use
  Company Number: US-PURDUE-USA-2009-0040914

PATIENT
  Age: 70 Year
  Sex: Female

DRUGS (2)
  1. RYZOLT [Suspect]
     Indication: PAIN
     Dosage: 100 MG, UNK
  2. RYZOLT [Suspect]

REACTIONS (3)
  - BALANCE DISORDER [None]
  - CONFUSIONAL STATE [None]
  - DEMENTIA [None]
